FAERS Safety Report 5047166-0 (Version None)
Quarter: 2006Q3

REPORT INFORMATION
  Report Type: 
  Country: None (occurrence: None)
  Receive Date: 20060703
  Receipt Date: 20060619
  Transmission Date: 20061208
  Serious: Yes (Death, Hospitalization, Other)
  Sender: FDA-Public Use
  Company Number: 2006080801

PATIENT
  Age: 74 Year
  Sex: Female

DRUGS (1)
  1. ATARAX [Suspect]
     Indication: PREMEDICATION
     Dosage: INTRAVENOUS
     Route: 042

REACTIONS (3)
  - AGITATION [None]
  - MEDICATION ERROR [None]
  - RESPIRATORY DEPRESSION [None]
